FAERS Safety Report 9681706 (Version 6)
Quarter: 2014Q4

REPORT INFORMATION
  Report Type: Spontaneous
  Country: US (occurrence: US)
  Receive Date: 20131111
  Receipt Date: 20141107
  Transmission Date: 20150529
  Serious: Yes (Other)
  Sender: FDA-Public Use
  Company Number: US-009507513-1311USA001612

PATIENT
  Sex: Male
  Weight: 92.29 kg

DRUGS (14)
  1. FLOMAX [Concomitant]
     Active Substance: TAMSULOSIN HYDROCHLORIDE
  2. FINASTERIDE. [Suspect]
     Active Substance: FINASTERIDE
     Indication: BENIGN PROSTATIC HYPERPLASIA
     Dosage: 5 MG, QD
     Route: 048
     Dates: start: 20081009, end: 201201
  3. LORATADINE. [Concomitant]
     Active Substance: LORATADINE
     Indication: RHINITIS ALLERGIC
     Dosage: 10 MG, QD
     Route: 048
  4. AVODART [Concomitant]
     Active Substance: DUTASTERIDE
     Indication: PROSTATOMEGALY
  5. [THERAPY UNSPECIFIED] [Concomitant]
     Active Substance: UNSPECIFIED INGREDIENT
     Indication: DEPRESSION
     Dosage: UNK
     Dates: start: 2000
  6. TAMSULOSIN HYDROCHLORIDE. [Concomitant]
     Active Substance: TAMSULOSIN HYDROCHLORIDE
     Indication: BLADDER OUTLET OBSTRUCTION
     Dosage: 0.4 MG, QD
     Route: 048
  7. AVODART [Concomitant]
     Active Substance: DUTASTERIDE
     Indication: BENIGN PROSTATIC HYPERPLASIA
     Dosage: 0.5 MG, AS DIRECTED
     Route: 048
     Dates: start: 200801, end: 200802
  8. VENLAFAXINE HYDROCHLORIDE. [Concomitant]
     Active Substance: VENLAFAXINE HYDROCHLORIDE
     Indication: DEPRESSION
     Dosage: 225 MG, QD
     Route: 048
  9. PROSCAR [Suspect]
     Active Substance: FINASTERIDE
     Route: 048
  10. VENLAFAXINE HYDROCHLORIDE. [Concomitant]
     Active Substance: VENLAFAXINE HYDROCHLORIDE
     Dosage: 75 MG, HS
     Route: 048
  11. CLONAZEPAM. [Concomitant]
     Active Substance: CLONAZEPAM
     Indication: ANXIETY
     Dosage: 0.5 MG, BID PRN
     Route: 048
  12. EFFEXOR [Concomitant]
     Active Substance: VENLAFAXINE HYDROCHLORIDE
     Indication: DEPRESSION
  13. VENLAFAXINE HYDROCHLORIDE. [Concomitant]
     Active Substance: VENLAFAXINE HYDROCHLORIDE
     Dosage: 150 MG, BID
     Route: 048
  14. FLUNISOLIDE. [Concomitant]
     Active Substance: FLUNISOLIDE
     Indication: RHINITIS ALLERGIC
     Dosage: 2 SPRAYS BOTH NOSTRILS TWICE A DAY
     Route: 045

REACTIONS (35)
  - Skin cancer [Unknown]
  - Infection [Unknown]
  - Hypertension [Unknown]
  - Eye disorder [Unknown]
  - Libido decreased [Unknown]
  - Prostate cancer [Unknown]
  - Lipoma excision [Unknown]
  - Impaired fasting glucose [Unknown]
  - Sleep disorder [Unknown]
  - Erectile dysfunction [Unknown]
  - Cholelithiasis [Unknown]
  - Haemorrhoids [Unknown]
  - Micturition urgency [Unknown]
  - Prostatitis [Unknown]
  - Haematuria [Unknown]
  - Renal cyst [Unknown]
  - Hypercholesterolaemia [Unknown]
  - Radiotherapy [Unknown]
  - Night sweats [Unknown]
  - Vasectomy [Unknown]
  - Drug ineffective [Unknown]
  - Lethargy [Unknown]
  - Lipoma [Unknown]
  - Upper respiratory tract infection [Unknown]
  - Gastrooesophageal reflux disease [Unknown]
  - Tinnitus [Unknown]
  - Gallstone ileus [Unknown]
  - Urinary tract infection [Unknown]
  - Deafness [Unknown]
  - Dysuria [Unknown]
  - Urinary retention [Unknown]
  - Treatment noncompliance [Unknown]
  - Cataract [Unknown]
  - Osteoarthritis [Unknown]
  - Temporomandibular joint syndrome [Unknown]

NARRATIVE: CASE EVENT DATE: 20081029
